FAERS Safety Report 24719749 (Version 1)
Quarter: 2024Q4

REPORT INFORMATION
  Report Type: Spontaneous
  Country: JP (occurrence: JP)
  Receive Date: 20241211
  Receipt Date: 20241211
  Transmission Date: 20250115
  Serious: Yes (Other)
  Sender: ABBVIE
  Company Number: JP-TAKEDA-2024TJP017368

PATIENT
  Sex: Male

DRUGS (1)
  1. LEUPLIN [Suspect]
     Active Substance: LEUPROLIDE ACETATE
     Indication: Prostate cancer
     Dosage: INJECTION KIT 22.5 MILLIGRAM, Q6MONTHS
     Route: 065

REACTIONS (1)
  - Otorhinolaryngological surgery [Unknown]
